FAERS Safety Report 15633133 (Version 1)
Quarter: 2018Q4

REPORT INFORMATION
  Report Type: Spontaneous
  Country: US (occurrence: US)
  Receive Date: 20181119
  Receipt Date: 20181119
  Transmission Date: 20190205
  Serious: No
  Sender: FDA-Public Use
  Company Number: US-PFIZER INC-2018473122

PATIENT

DRUGS (2)
  1. CRIZOTINIB [Suspect]
     Active Substance: CRIZOTINIB
     Dosage: UNK
  2. ALECTINIB. [Suspect]
     Active Substance: ALECTINIB
     Dosage: UNK

REACTIONS (1)
  - Neoplasm progression [Unknown]
